FAERS Safety Report 6987967-2 (Version None)
Quarter: 2010Q3

REPORT INFORMATION
  Report Type: 
  Country: None (occurrence: None)
  Receive Date: 20100916
  Receipt Date: 20100802
  Transmission Date: 20110219
  Serious: No
  Sender: FDA-Public Use
  Company Number: US-ABBOTT-10P-163-0662783-00

PATIENT

DRUGS (1)
  1. TRILIPIX [Suspect]
     Indication: PRODUCT USED FOR UNKNOWN INDICATION

REACTIONS (6)
  - CHILLS [None]
  - DYSPEPSIA [None]
  - HEADACHE [None]
  - MALAISE [None]
  - PAIN [None]
  - VOMITING [None]
